FAERS Safety Report 9744235 (Version 1)
Quarter: 2013Q4

REPORT INFORMATION
  Report Type: Spontaneous
  Country: US (occurrence: US)
  Receive Date: 20131210
  Receipt Date: 20131210
  Transmission Date: 20140711
  Serious: No
  Sender: FDA-Public Use
  Company Number: US-BIOGENIDEC-2013BI101446

PATIENT
  Sex: Female

DRUGS (8)
  1. TECFIDERA [Suspect]
     Indication: PRODUCT USED FOR UNKNOWN INDICATION
     Dates: start: 201306, end: 20130916
  2. TECFIDERA [Suspect]
     Indication: PRODUCT USED FOR UNKNOWN INDICATION
     Route: 048
     Dates: end: 20130930
  3. NEURONTIN [Concomitant]
  4. HYDROCODONE-ACETAMINOPHEN [Concomitant]
  5. BACLOFEN [Concomitant]
  6. AMITRIPTYLINE HCL [Concomitant]
  7. PROMETHAZINE [Concomitant]
  8. ZANAFLEX [Concomitant]

REACTIONS (11)
  - White blood cell count increased [Not Recovered/Not Resolved]
  - Gait disturbance [Unknown]
  - Dizziness [Unknown]
  - Neuralgia [Unknown]
  - Urinary incontinence [Unknown]
  - Fatigue [Unknown]
  - Asthenia [Unknown]
  - Balance disorder [Unknown]
  - Gastrointestinal disorder [Unknown]
  - Multiple sclerosis relapse [Unknown]
  - Burning sensation [Unknown]
